FAERS Safety Report 5653075-6 (Version None)
Quarter: 2008Q1

REPORT INFORMATION
  Report Type: 
  Country: None (occurrence: None)
  Receive Date: 20080306
  Receipt Date: 20080229
  Transmission Date: 20080703
  Serious: Yes (Other)
  Sender: FDA-Public Use
  Company Number: BE-ASTRAZENECA-1998AP46325

PATIENT
  Age: 23845 Day
  Sex: Female

DRUGS (11)
  1. MEROPENEM [Suspect]
     Indication: NOSOCOMIAL INFECTION
     Route: 042
     Dates: start: 19970727, end: 19970807
  2. DEPAKENE [Interacting]
     Indication: EPILEPSY
     Route: 042
     Dates: start: 19970710, end: 19970728
  3. DIGOXIN [Concomitant]
     Indication: ARRHYTHMIA
     Route: 042
     Dates: start: 19970717
  4. RANITIDINE [Concomitant]
     Dates: start: 19970710
  5. NIMODIPINE [Concomitant]
     Dates: start: 19970710
  6. PROPARACETAMOL CHLORHYDRATE [Concomitant]
     Dates: start: 19970710
  7. FLUCONAZOLE [Concomitant]
     Route: 042
     Dates: start: 19970713
  8. AMIODARONE HCL [Concomitant]
     Dates: start: 19970717, end: 19970802
  9. PROPOFOL [Concomitant]
     Dates: start: 19970718, end: 19970724
  10. CIPROXIN [Concomitant]
     Dates: start: 19970724, end: 19970725
  11. AMIKACIN [Concomitant]
     Indication: PNEUMONIA
     Route: 042
     Dates: start: 19970725, end: 19970807

REACTIONS (2)
  - ANTICONVULSANT DRUG LEVEL BELOW THERAPEUTIC [None]
  - DRUG INTERACTION [None]
